FAERS Safety Report 4454619-2 (Version None)
Quarter: 2004Q3

REPORT INFORMATION
  Report Type: 
  Country: None (occurrence: None)
  Receive Date: 20040826
  Receipt Date: 20040106
  Transmission Date: 20050211
  Serious: Yes (Life-Threatening)
  Sender: FDA-Public Use
  Company Number: 234659

PATIENT
  Age: 82 Year
  Sex: Female
  Weight: 72.6 kg

DRUGS (9)
  1. NOVOLIN N INNOLET (INSULIN HUMAN) SUSPENSION FOR INJECTION, 100IU/ML [Suspect]
     Indication: INSULIN-REQUIRING TYPE II DIABETES MELLITUS
     Dosage: SEE IMAGE
     Route: 058
     Dates: start: 20031201, end: 20031228
  2. NOVOLIN N INNOLET (INSULIN HUMAN) SUSPENSION FOR INJECTION, 100IU/ML [Suspect]
     Indication: INSULIN-REQUIRING TYPE II DIABETES MELLITUS
     Dosage: SEE IMAGE
     Route: 058
     Dates: start: 20031229, end: 20040105
  3. GLUCOTROL [Concomitant]
  4. NORVASC [Concomitant]
  5. ACCUPRIL [Concomitant]
  6. TOPROL-XL [Concomitant]
  7. ZOCOR [Concomitant]
  8. ACETYLSALICYLIC ACID SRT [Concomitant]
  9. STEROID, EPIDERMAL INJECTION [Concomitant]

REACTIONS (2)
  - HYPOGLYCAEMIC COMA [None]
  - PAIN IN EXTREMITY [None]
